FAERS Safety Report 17592595 (Version 1)
Quarter: 2020Q1

REPORT INFORMATION
  Report Type: Spontaneous
  Country: US (occurrence: US)
  Receive Date: 20200327
  Receipt Date: 20200327
  Transmission Date: 20200409
  Serious: No
  Sender: FDA-Public Use
  Company Number: US-GLAXOSMITHKLINE-US2020053168

PATIENT
  Sex: Male

DRUGS (1)
  1. NICODERM CQ [Suspect]
     Active Substance: NICOTINE
     Indication: PRODUCT USED FOR UNKNOWN INDICATION
     Dosage: 1 UNK
     Dates: start: 20200324

REACTIONS (3)
  - Application site pruritus [Unknown]
  - Application site pain [Unknown]
  - Application site erythema [Unknown]

NARRATIVE: CASE EVENT DATE: 20200324
